FAERS Safety Report 13717452 (Version 2)
Quarter: 2017Q3

REPORT INFORMATION
  Report Type: Spontaneous
  Country: US (occurrence: US)
  Receive Date: 20170705
  Receipt Date: 20170831
  Transmission Date: 20171127
  Serious: Yes (Other)
  Sender: FDA-Public Use
  Company Number: US-GLAXOSMITHKLINE-US2017099780

PATIENT
  Age: 61 Year
  Sex: Female
  Weight: 87.53 kg

DRUGS (1)
  1. NUCALA [Suspect]
     Active Substance: MEPOLIZUMAB
     Indication: ASTHMA
     Dosage: 100 MG, SINGLE
     Route: 058
     Dates: start: 20170622

REACTIONS (7)
  - Anaphylactic reaction [Unknown]
  - Throat irritation [Recovered/Resolved]
  - Injection site rash [Unknown]
  - Injection site urticaria [Unknown]
  - Dyspnoea [Recovered/Resolved]
  - Injection site pruritus [Unknown]
  - Paraesthesia [Unknown]

NARRATIVE: CASE EVENT DATE: 20170622
